FAERS Safety Report 16876175 (Version 3)
Quarter: 2019Q4

REPORT INFORMATION
  Report Type: Spontaneous
  Country: CZ (occurrence: CZ)
  Receive Date: 20191002
  Receipt Date: 20191204
  Transmission Date: 20200122
  Serious: Yes (Other)
  Sender: FDA-Public Use
  Company Number: CZ-SA-2019SA271000

PATIENT
  Age: 69 Year
  Sex: Male

DRUGS (3)
  1. LANTUS [Suspect]
     Active Substance: INSULIN GLARGINE
     Indication: TYPE 2 DIABETES MELLITUS
     Dosage: 30 IU, QD
     Route: 058
     Dates: start: 2008, end: 201712
  2. NOVORAPID [Suspect]
     Active Substance: INSULIN ASPART
     Dosage: DOSE WAS ADJUSTED TO 8-12 IU PRIOR FOOD
     Route: 058
  3. NOVORAPID [Suspect]
     Active Substance: INSULIN ASPART
     Indication: TYPE 2 DIABETES MELLITUS
     Dosage: 25 IU, TID
     Route: 058
     Dates: start: 2008

REACTIONS (4)
  - Hyperglycaemia [Recovered/Resolved]
  - Treatment noncompliance [Unknown]
  - Diabetes mellitus inadequate control [Recovered/Resolved]
  - Diabetic metabolic decompensation [Recovered/Resolved]

NARRATIVE: CASE EVENT DATE: 201712
